FAERS Safety Report 8984810 (Version 3)
Quarter: 2013Q1

REPORT INFORMATION
  Report Type: Spontaneous
  Country: US (occurrence: US)
  Receive Date: 20121226
  Receipt Date: 20130318
  Transmission Date: 20140127
  Serious: Yes (Hospitalization, Other)
  Sender: FDA-Public Use
  Company Number: US-BAYER-2012-133526

PATIENT
  Age: 37 Year
  Sex: Female
  Weight: 81.63 kg

DRUGS (6)
  1. YASMIN [Suspect]
     Indication: HORMONE REPLACEMENT THERAPY
     Dosage: UNK
     Dates: start: 200504, end: 201010
  2. YAZ [Suspect]
     Dosage: UNK
     Dates: start: 200504, end: 201010
  3. PHENERGAN [Concomitant]
     Dosage: UNK
     Dates: start: 20070809
  4. PERCOCET [Concomitant]
     Dosage: UNK
     Dates: start: 20070809
  5. ONDANSETRON [Concomitant]
     Dosage: 4 MG, UNK
     Dates: start: 20070811
  6. CANNABIS SATIVA SUBSP. INDICA TOP [Concomitant]
     Dosage: UNK
     Dates: start: 200708, end: 200710

REACTIONS (7)
  - Myocardial ischaemia [None]
  - Cerebrovascular accident [None]
  - Splenic infarction [None]
  - Hemiplegia [None]
  - Speech disorder [None]
  - Off label use [None]
  - Pain [None]
